FAERS Safety Report 6610017-4 (Version None)
Quarter: 2010Q1

REPORT INFORMATION
  Report Type: 
  Country: None (occurrence: None)
  Receive Date: 20100216
  Receipt Date: 20090217
  Transmission Date: 20100710
  Serious: Yes (Other)
  Sender: FDA-Public Use
  Company Number: MC200900055

PATIENT
  Age: 64 Year
  Sex: Male
  Weight: 122 kg

DRUGS (5)
  1. ANGIOMAX [Suspect]
     Indication: PERCUTANEOUS CORONARY INTERVENTION
     Dosage: 0.75 MG/KG, BOLUS, INTRAVENOUS
     Route: 040
  2. ANGIOMAX [Suspect]
     Indication: STENT PLACEMENT
     Dosage: 0.75 MG/KG, BOLUS, INTRAVENOUS
     Route: 040
  3. PLAVIX [Concomitant]
  4. ASPIRIN [Concomitant]
  5. COUMADIN [Concomitant]

REACTIONS (1)
  - INTERNATIONAL NORMALISED RATIO INCREASED [None]
